FAERS Safety Report 11006190 (Version 1)
Quarter: 2015Q2

REPORT INFORMATION
  Report Type: Spontaneous
  Country: US (occurrence: US)
  Receive Date: 20150409
  Receipt Date: 20150409
  Transmission Date: 20150821
  Serious: No
  Sender: FDA-Public Use
  Company Number: US-ALLERGAN-1406752US

PATIENT
  Sex: Female
  Weight: 89.8 kg

DRUGS (4)
  1. CLOTRIMAZOLE AND BETAMETHASONE [Concomitant]
     Dosage: UNK UNK, BID
     Route: 061
     Dates: start: 20130718
  2. NSAID^S [Concomitant]
     Active Substance: UNSPECIFIED INGREDIENT
  3. MENTAX [Concomitant]
     Active Substance: BUTENAFINE HYDROCHLORIDE
     Dosage: UNK UNK, BID
     Route: 061
     Dates: start: 20130718
  4. LATISSE [Suspect]
     Active Substance: BIMATOPROST
     Indication: GROWTH OF EYELASHES
     Dosage: 2 GTT, UNK
     Route: 061
     Dates: start: 20130802, end: 201311

REACTIONS (2)
  - Madarosis [Unknown]
  - Madarosis [Not Recovered/Not Resolved]
